FAERS Safety Report 9431528 (Version 49)
Quarter: 2018Q1

REPORT INFORMATION
  Report Type: Report from Study
  Country: CA (occurrence: CA)
  Receive Date: 20130730
  Receipt Date: 20180302
  Transmission Date: 20180509
  Serious: Yes (Hospitalization, Other)
  Sender: FDA-Public Use
  Company Number: CA-ROCHE-1122251

PATIENT
  Age: 58 Year
  Sex: Female
  Weight: 130.5 kg

DRUGS (14)
  1. ULTRAM [Suspect]
     Active Substance: TRAMADOL HYDROCHLORIDE
     Indication: PRODUCT USED FOR UNKNOWN INDICATION
     Route: 048
  2. CELEXA [Concomitant]
     Active Substance: CITALOPRAM HYDROBROMIDE
  3. NAPROXEN. [Concomitant]
     Active Substance: NAPROXEN
  4. PLAQUENIL [Concomitant]
     Active Substance: HYDROXYCHLOROQUINE SULFATE
  5. AVAPRO [Concomitant]
     Active Substance: IRBESARTAN
  6. ACTEMRA [Suspect]
     Active Substance: TOCILIZUMAB
     Dosage: RESTARTED
     Route: 042
     Dates: start: 20170925
  7. METHOTREXATE. [Concomitant]
     Active Substance: METHOTREXATE
     Route: 065
  8. TYLENOL [Concomitant]
     Active Substance: ACETAMINOPHEN
  9. METHOTREXATE. [Concomitant]
     Active Substance: METHOTREXATE
     Route: 065
  10. SERAX (OXAZEPAM) [Concomitant]
     Route: 065
  11. FUROSEMIDE. [Concomitant]
     Active Substance: FUROSEMIDE
  12. ACTEMRA [Suspect]
     Active Substance: TOCILIZUMAB
     Indication: RHEUMATOID ARTHRITIS
     Route: 042
     Dates: start: 20111116
  13. TRAMACET [Suspect]
     Active Substance: ACETAMINOPHEN\TRAMADOL
     Indication: PRODUCT USED FOR UNKNOWN INDICATION
     Route: 048
  14. LASIX [Concomitant]
     Active Substance: FUROSEMIDE

REACTIONS (57)
  - Trigger finger [Recovered/Resolved]
  - Inflammation [Unknown]
  - Arthralgia [Unknown]
  - Irritable bowel syndrome [Not Recovered/Not Resolved]
  - Dizziness [Unknown]
  - Rash [Recovered/Resolved]
  - Diarrhoea [Not Recovered/Not Resolved]
  - Weight increased [Unknown]
  - Arthralgia [Not Recovered/Not Resolved]
  - Wound [Unknown]
  - Tendon injury [Not Recovered/Not Resolved]
  - Infusion related reaction [Not Recovered/Not Resolved]
  - Bronchitis [Recovered/Resolved]
  - Paronychia [Recovering/Resolving]
  - Rheumatoid arthritis [Unknown]
  - Diarrhoea infectious [Not Recovered/Not Resolved]
  - Blood pressure systolic increased [Unknown]
  - Somnolence [Unknown]
  - Asthenia [Unknown]
  - Infusion related reaction [Unknown]
  - Trigger finger [Recovering/Resolving]
  - Eye irritation [Recovering/Resolving]
  - Eye pain [Recovered/Resolved]
  - Fatigue [Unknown]
  - Malaise [Not Recovered/Not Resolved]
  - Mobility decreased [Recovered/Resolved]
  - Sleep apnoea syndrome [Not Recovered/Not Resolved]
  - Diarrhoea [Recovered/Resolved]
  - Hypertension [Recovered/Resolved]
  - Pain in extremity [Not Recovered/Not Resolved]
  - Feeling of body temperature change [Unknown]
  - Dizziness [Unknown]
  - Chronic obstructive pulmonary disease [Not Recovered/Not Resolved]
  - Impaired healing [Recovered/Resolved]
  - Arthritis [Recovered/Resolved]
  - Nodule [Not Recovered/Not Resolved]
  - Pruritus [Unknown]
  - Abdominal distension [Not Recovered/Not Resolved]
  - Drug ineffective [Unknown]
  - Asthma [Unknown]
  - Cellulitis [Not Recovered/Not Resolved]
  - Headache [Not Recovered/Not Resolved]
  - Pain [Not Recovered/Not Resolved]
  - Asthenia [Unknown]
  - Tonsillitis [Recovered/Resolved]
  - Vertigo [Not Recovered/Not Resolved]
  - Nasopharyngitis [Not Recovered/Not Resolved]
  - Tendon rupture [Unknown]
  - Hepatic enzyme increased [Recovered/Resolved]
  - Conjunctivitis [Not Recovered/Not Resolved]
  - Musculoskeletal stiffness [Not Recovered/Not Resolved]
  - Oedema [Unknown]
  - Weight increased [Recovered/Resolved]
  - Nausea [Unknown]
  - Tooth abscess [Recovered/Resolved]
  - Weight decreased [Unknown]
  - Fall [Unknown]

NARRATIVE: CASE EVENT DATE: 2012
